FAERS Safety Report 8580678-1 (Version None)
Quarter: 2012Q3

REPORT INFORMATION
  Report Type: 
  Country: None (occurrence: None)
  Receive Date: 20120809
  Receipt Date: 20120731
  Transmission Date: 20120928
  Serious: No
  Sender: FDA-Public Use
  Company Number: US-BIOGENIDEC-2012BI022864

PATIENT
  Sex: Female

DRUGS (2)
  1. AVONEX [Concomitant]
     Indication: MULTIPLE SCLEROSIS
     Route: 030
  2. TYSABRI [Suspect]
     Indication: MULTIPLE SCLEROSIS
     Route: 042
     Dates: start: 20110825

REACTIONS (5)
  - OROPHARYNGEAL PAIN [None]
  - OROPHARYNGEAL DISCOMFORT [None]
  - ASTHENIA [None]
  - DYSPHAGIA [None]
  - NASOPHARYNGITIS [None]
